FAERS Safety Report 21622007 (Version 1)
Quarter: 2022Q4

REPORT INFORMATION
  Report Type: Spontaneous
  Country: US (occurrence: None)
  Receive Date: 20221118
  Receipt Date: 20221118
  Transmission Date: 20230113
  Serious: No
  Sender: FDA-Public Use
  Company Number: None

PATIENT
  Age: 51 Year
  Sex: Male
  Weight: 114.75 kg

DRUGS (1)
  1. CIALIS [Suspect]
     Active Substance: TADALAFIL
     Dosage: OTHER QUANTITY : 1 TABLET(S);?OTHER FREQUENCY : AS NEEDED;?
     Route: 048

REACTIONS (2)
  - Pain in extremity [None]
  - Pain in extremity [None]
